FAERS Safety Report 19898468 (Version 1)
Quarter: 2021Q3

REPORT INFORMATION
  Report Type: Spontaneous
  Country: NL (occurrence: NL)
  Receive Date: 20210929
  Receipt Date: 20210929
  Transmission Date: 20211014
  Serious: Yes (Life-Threatening, Other)
  Sender: FDA-Public Use
  Company Number: NL-ACCORD-239917

PATIENT
  Age: 85 Year
  Sex: Female

DRUGS (2)
  1. SIMVASTATIN. [Suspect]
     Active Substance: SIMVASTATIN
     Indication: MYOCARDIAL INFARCTION
     Dosage: 1 PER DAY
     Dates: start: 202109, end: 20210906
  2. DAKTARIN [Interacting]
     Active Substance: MICONAZOLE NITRATE
     Indication: PRODUCT USED FOR UNKNOWN INDICATION
     Dosage: GEL, 20 MG/G (MILLIGRAM PER GRAM)

REACTIONS (5)
  - Muscular weakness [Recovered/Resolved]
  - Myalgia [Recovered/Resolved]
  - Drug interaction [Unknown]
  - Rhabdomyolysis [Recovered/Resolved]
  - Blood creatine phosphokinase increased [Recovered/Resolved]

NARRATIVE: CASE EVENT DATE: 20210902
